FAERS Safety Report 9078890 (Version 1)
Quarter: 2013Q1

REPORT INFORMATION
  Report Type: Report from Study
  Country: US (occurrence: US)
  Receive Date: 20130130
  Receipt Date: 20130130
  Transmission Date: 20140127
  Serious: No
  Sender: FDA-Public Use
  Company Number: US-ABBOTT-12P-163-0958607-00

PATIENT
  Sex: Female
  Weight: 66.28 kg

DRUGS (10)
  1. HUMIRA 40 MG/0.8 ML PEN [Suspect]
     Indication: CROHN^S DISEASE
     Dates: start: 201204
  2. ASACOL [Concomitant]
     Indication: CROHN^S DISEASE
  3. SIMVASTATIN [Concomitant]
     Indication: BLOOD CHOLESTEROL INCREASED
  4. LISINOPRIL [Concomitant]
     Indication: HYPERTENSION
  5. TIZANADINE [Concomitant]
     Indication: MUSCLE SPASMS
  6. CLONOPIN [Concomitant]
     Indication: ANXIETY
  7. METHODONE [Concomitant]
     Indication: PAIN
  8. CALCIUM WITH VITAMIN D [Concomitant]
     Indication: MINERAL SUPPLEMENTATION
  9. DUCOLAX [Concomitant]
     Indication: CONSTIPATION
  10. METHAZINE [Concomitant]
     Indication: NAUSEA

REACTIONS (1)
  - Overdose [Not Recovered/Not Resolved]
